FAERS Safety Report 7909501-2 (Version None)
Quarter: 2011Q4

REPORT INFORMATION
  Report Type: 
  Country: None (occurrence: None)
  Receive Date: 20111111
  Receipt Date: 20111102
  Transmission Date: 20120403
  Serious: Yes (Hospitalization, Other)
  Sender: FDA-Public Use
  Company Number: US-BAYER-2011-044818

PATIENT
  Age: 38 Year
  Sex: Female
  Weight: 58.957 kg

DRUGS (7)
  1. METAMUCIL-2 [Concomitant]
     Dosage: UNK UNK, PRN
     Dates: start: 20010101
  2. NAPROXEN (ALEVE) [Concomitant]
     Dosage: UNK UNK, PRN
     Dates: start: 20010101
  3. YAZ [Suspect]
     Indication: CONTRACEPTION
     Dosage: UNK
     Dates: start: 20080801, end: 20090701
  4. CIPROFLOXACIN HCL [Concomitant]
     Dosage: 250 MG, UNK
     Dates: start: 20090611
  5. IBUPROFEN (ADVIL) [Concomitant]
     Dosage: UNK UNK, PRN
     Dates: start: 20010101
  6. ASCORBIC ACID [Concomitant]
     Dosage: UNK
     Dates: start: 20010101
  7. YAZ [Suspect]
     Indication: PREMENSTRUAL SYNDROME

REACTIONS (14)
  - CHOLELITHIASIS [None]
  - VOMITING [None]
  - PAIN [None]
  - NEURILEMMOMA [None]
  - DIARRHOEA [None]
  - DYSPNOEA [None]
  - MUSCLE SPASMS [None]
  - NAUSEA [None]
  - ABDOMINAL MASS [None]
  - VASODILATATION [None]
  - PAIN IN EXTREMITY [None]
  - FEAR [None]
  - ABDOMINAL PAIN LOWER [None]
  - NERVE INJURY [None]
